FAERS Safety Report 7716300-3 (Version None)
Quarter: 2011Q3

REPORT INFORMATION
  Report Type: 
  Country: None (occurrence: None)
  Receive Date: 20110829
  Receipt Date: 20110815
  Transmission Date: 20111222
  Serious: Yes (Hospitalization, Other)
  Sender: FDA-Public Use
  Company Number: PHHY2011BR73834

PATIENT
  Sex: Female

DRUGS (3)
  1. LASIX [Concomitant]
     Dosage: UNK UKN, UNK
  2. DIOVAN [Suspect]
     Indication: HYPERTENSION
     Dosage: UNK UKN, UNK
     Dates: end: 20100101
  3. OMEPRAZOLE [Concomitant]
     Indication: PROPHYLAXIS
     Dosage: 20 MG, UNK

REACTIONS (3)
  - ENCEPHALOPATHY [None]
  - URINARY TRACT INFECTION [None]
  - ARRHYTHMIA [None]
